FAERS Safety Report 4560239-1 (Version None)
Quarter: 2005Q1

REPORT INFORMATION
  Report Type: 
  Country: None (occurrence: None)
  Receive Date: 20050120
  Receipt Date: 20050120
  Transmission Date: 20050727
  Serious: Yes (Other)
  Sender: FDA-Public Use
  Company Number: None

PATIENT
  Sex: Male
  Weight: 92.9874 kg

DRUGS (1)
  1. ISOSORBIDE 30MG   KREMERC URBAN [Suspect]
     Indication: CHEST PAIN
     Dosage: 15MG  DAILY  ORAL
     Route: 048
     Dates: start: 20040923, end: 20041216

REACTIONS (1)
  - HEADACHE [None]
